FAERS Safety Report 8151309-X (Version None)
Quarter: 2012Q1

REPORT INFORMATION
  Report Type: 
  Country: None (occurrence: None)
  Receive Date: 20120220
  Receipt Date: 20120215
  Transmission Date: 20120608
  Serious: Yes (Life-Threatening, Hospitalization)
  Sender: FDA-Public Use
  Company Number: BF-GILEAD-2012-0050926

PATIENT
  Sex: Female

DRUGS (7)
  1. RITONAVIR [Suspect]
     Indication: HIV INFECTION
     Dosage: 200 MG, QD
     Route: 048
     Dates: start: 20101016
  2. ALBENDAZOLE [Concomitant]
     Indication: PRURITUS
     Dosage: 400 MG, QD
     Dates: start: 20101111, end: 20101113
  3. METRONIDAZOLE [Concomitant]
     Indication: DYSENTERY
     Dosage: 500 MG, TID
     Dates: start: 20110401, end: 20110407
  4. EMTRICITABINE AND TENOFOVIR DISOPROXIL FUMARATE [Suspect]
     Indication: HIV INFECTION
     Dosage: 1 DF, QD
     Route: 048
     Dates: start: 20101016
  5. DARUNAVIR ETHANOLATE [Suspect]
     Indication: HIV INFECTION
     Dosage: 800 MG, QD
     Route: 048
     Dates: start: 20101016
  6. COTRIM [Concomitant]
     Indication: PROPHYLAXIS
     Dosage: 960 MG, QD
     Dates: start: 20061127, end: 20110915
  7. ALLERGINE                          /00072502/ [Concomitant]
     Indication: PRURITUS
     Dosage: 10 MG, QD
     Dates: start: 20101111, end: 20101120

REACTIONS (1)
  - ECTOPIC PREGNANCY [None]
